FAERS Safety Report 5931113-0 (Version None)
Quarter: 2008Q4

REPORT INFORMATION
  Report Type: 
  Country: None (occurrence: None)
  Receive Date: 20081027
  Receipt Date: 20081015
  Transmission Date: 20090506
  Serious: Yes (Other)
  Sender: FDA-Public Use
  Company Number: PHHY2008JP25793

PATIENT
  Age: 70 Year
  Sex: Female

DRUGS (2)
  1. AREDIA [Suspect]
     Dosage: UNK
     Route: 042
     Dates: start: 20050530, end: 20060626
  2. ZOMETA [Suspect]
     Dosage: UNK
     Route: 042
     Dates: start: 20060724, end: 20070709

REACTIONS (1)
  - OSTEONECROSIS [None]
